FAERS Safety Report 5366795-8 (Version None)
Quarter: 2007Q2

REPORT INFORMATION
  Report Type: 
  Country: None (occurrence: None)
  Receive Date: 20070622
  Receipt Date: 20060523
  Transmission Date: 20071010
  Serious: No
  Sender: FDA-Public Use
  Company Number: A0607122A

PATIENT
  Age: 46 Year
  Sex: Female

DRUGS (1)
  1. ZYBAN [Suspect]
     Route: 048
     Dates: start: 20060513, end: 20060516

REACTIONS (2)
  - RASH [None]
  - URTICARIA [None]
